FAERS Safety Report 18646638 (Version 2)
Quarter: 2021Q1

REPORT INFORMATION
  Report Type: Other
  Country: US (occurrence: US)
  Receive Date: 20201221
  Receipt Date: 20210320
  Transmission Date: 20210419
  Serious: No
  Sender: FDA-Public Use
  Company Number: US-ACORDA-ACO_166870_2020

PATIENT
  Sex: Male

DRUGS (7)
  1. RYTARY [Concomitant]
     Active Substance: CARBIDOPA\LEVODOPA
     Dosage: 195 MILLIGRAM 5 TIMES A DAY EVERY 4 HOURS (6 AM, 10 AM, 2 PM, 6 PM, 10 PM)
     Route: 065
  2. XADAGO [Concomitant]
     Active Substance: SAFINAMIDE MESYLATE
     Indication: PRODUCT USED FOR UNKNOWN INDICATION
     Dosage: 100 MILLIGRAM, QD
     Route: 065
  3. AMANTADINE. [Concomitant]
     Active Substance: AMANTADINE HYDROCHLORIDE
     Indication: PRODUCT USED FOR UNKNOWN INDICATION
     Dosage: 100 MILLIGRAM, BID
     Route: 065
  4. NEUPRO [Concomitant]
     Active Substance: ROTIGOTINE
     Indication: PRODUCT USED FOR UNKNOWN INDICATION
     Dosage: 8 MILLIGRAM, QD
     Route: 062
  5. RYTARY [Concomitant]
     Active Substance: CARBIDOPA\LEVODOPA
     Indication: PRODUCT USED FOR UNKNOWN INDICATION
     Dosage: 245 MILLIGRAM
     Route: 065
  6. INBRIJA [Suspect]
     Active Substance: LEVODOPA
     Indication: ON AND OFF PHENOMENON
  7. INBRIJA [Suspect]
     Active Substance: LEVODOPA
     Indication: PARKINSON^S DISEASE
     Dosage: 84 MILLIGRAM, PRN, NOT TO EXCEED 5 DOSES PER DAY
     Dates: start: 20200925

REACTIONS (6)
  - Therapeutic product effect decreased [Unknown]
  - Device difficult to use [Unknown]
  - Gait disturbance [Unknown]
  - Product storage error [Unknown]
  - Headache [Unknown]
  - Parkinson^s disease [Unknown]
